FAERS Safety Report 24900663 (Version 2)
Quarter: 2025Q1

REPORT INFORMATION
  Report Type: Spontaneous
  Country: US (occurrence: US)
  Receive Date: 20250129
  Receipt Date: 20250211
  Transmission Date: 20250409
  Serious: No
  Sender: TOLMAR
  Company Number: US-TOLMAR, INC.-25US055952

PATIENT
  Age: 16 Year
  Sex: Male

DRUGS (1)
  1. FENSOLVI [Suspect]
     Active Substance: LEUPROLIDE ACETATE
     Indication: Hormone replacement therapy
     Dosage: 45 MILLIGRAM, Q 6 MONTH
     Route: 058
     Dates: start: 20241206

REACTIONS (4)
  - Injection site discomfort [Unknown]
  - Injection site discharge [Unknown]
  - Off label use [Unknown]
  - Injection site mass [Unknown]

NARRATIVE: CASE EVENT DATE: 20241206
